FAERS Safety Report 9442050 (Version 7)
Quarter: 2014Q2

REPORT INFORMATION
  Report Type: Report from Study
  Country: US (occurrence: US)
  Receive Date: 20130806
  Receipt Date: 20140417
  Transmission Date: 20141212
  Serious: Yes (Hospitalization)
  Sender: FDA-Public Use
  Company Number: US-SANOFI-AVENTIS-2013SA078687

PATIENT
  Age: 61 Year
  Sex: Female

DRUGS (3)
  1. AUBAGIO [Suspect]
     Indication: MULTIPLE SCLEROSIS
     Route: 048
     Dates: start: 20130703
  2. AUBAGIO [Suspect]
     Indication: MULTIPLE SCLEROSIS
     Route: 048
     Dates: start: 20130805, end: 201401
  3. TRILEPTAL [Suspect]

REACTIONS (13)
  - Depression [Recovered/Resolved]
  - Anosmia [Unknown]
  - Ageusia [Unknown]
  - Drooling [Unknown]
  - Fatigue [Unknown]
  - Hypersomnia [Unknown]
  - Alanine aminotransferase increased [Unknown]
  - Hypoaesthesia [Unknown]
  - Alopecia [Not Recovered/Not Resolved]
  - Paraesthesia [Unknown]
  - Affect lability [Unknown]
  - Mania [Unknown]
  - Drug dose omission [Unknown]
